FAERS Safety Report 15397033 (Version 1)
Quarter: 2018Q3

REPORT INFORMATION
  Report Type: Spontaneous
  Country: US (occurrence: US)
  Receive Date: 20180913
  Receipt Date: 20180913
  Transmission Date: 20181010
  Serious: No
  Sender: FDA-Public Use
  Company Number: None

PATIENT
  Age: 52 Year
  Sex: Female
  Weight: 97.52 kg

DRUGS (2)
  1. CIMZIA [Suspect]
     Active Substance: CERTOLIZUMAB PEGOL
     Indication: PSORIASIS
     Dosage: INJECT 400MG (2 SYRINGES) SUBCUTANEOUSLY  EVERY 4 WEEKS  AS DIRECTED
     Route: 042
     Dates: start: 201503
  2. CIMZIA [Suspect]
     Active Substance: CERTOLIZUMAB PEGOL
     Indication: OSTEOARTHRITIS
     Dosage: INJECT 400MG (2 SYRINGES) SUBCUTANEOUSLY  EVERY 4 WEEKS  AS DIRECTED
     Route: 042
     Dates: start: 201503

REACTIONS (1)
  - Osteoarthritis [None]
